FAERS Safety Report 25338274 (Version 1)
Quarter: 2025Q2

REPORT INFORMATION
  Report Type: Spontaneous
  Country: JP (occurrence: JP)
  Receive Date: 20250520
  Receipt Date: 20250520
  Transmission Date: 20250717
  Serious: Yes (Death)
  Sender: ASTELLAS
  Company Number: JP-GILEAD-2025-0713849

PATIENT
  Age: 42 Year
  Sex: Female

DRUGS (1)
  1. AMPHOTERICIN B [Suspect]
     Active Substance: AMPHOTERICIN B
     Indication: Meningitis fungal
     Dosage: 5 MG/KG/DAY
     Route: 065

REACTIONS (1)
  - Drug ineffective [Fatal]
